FAERS Safety Report 6717986-2 (Version None)
Quarter: 2010Q2

REPORT INFORMATION
  Report Type: 
  Country: None (occurrence: None)
  Receive Date: 20100510
  Receipt Date: 20100506
  Transmission Date: 20101027
  Serious: Yes (Life-Threatening, Hospitalization)
  Sender: FDA-Public Use
  Company Number: CN-BRISTOL-MYERS SQUIBB COMPANY-15094691

PATIENT
  Age: 50 Year
  Sex: Male

DRUGS (1)
  1. BARACLUDE [Suspect]
     Indication: HEPATITIS B
     Dosage: DOSAGE DECREASED TO 0.5MG/QD IN FEB10.
     Route: 048

REACTIONS (1)
  - PLATELET COUNT DECREASED [None]
